FAERS Safety Report 17970946 (Version 2)
Quarter: 2022Q1

REPORT INFORMATION
  Report Type: Report from Study
  Country: US (occurrence: None)
  Receive Date: 20200701
  Receipt Date: 20220118
  Transmission Date: 20220423
  Serious: Yes (Other)
  Sender: FDA-Public Use
  Company Number: US-ROCHE-2562547

PATIENT
  Age: 59 Year
  Sex: Female
  Weight: 63 kg

DRUGS (5)
  1. ATEZOLIZUMAB [Suspect]
     Active Substance: ATEZOLIZUMAB
     Indication: Mesothelioma malignant
     Dosage: ON 04/DEC/2019, RECEIVED MOST RECENT DOSE OF ATEZOLIZUMAB. ?RECEIVED SUBSEQUENT DOSES OF ATEZOLIZUMA
     Route: 042
     Dates: start: 20181214
  2. CISPLATIN [Suspect]
     Active Substance: CISPLATIN
     Indication: Mesothelioma malignant
     Dosage: SHE RECEIVED MOST RECENT DOSE ON 19/FEB/2019?RECEIVED SUBSEQUENT DOSES OF  CISPLATIN 126 MG ON 28/JA
     Route: 042
     Dates: start: 20181214
  3. PEMETREXED [Suspect]
     Active Substance: PEMETREXED
     Indication: Mesothelioma malignant
     Dosage: SHE RECEIVED MOST RECENT DOSE ON 19/FEB/2019?RECEIVED SUBSEQUENT DOSES OF PEMETREXED 840 MG ON 28/JA
     Route: 042
     Dates: start: 20181214
  4. FUROSEMIDE [Concomitant]
     Active Substance: FUROSEMIDE
  5. POTASSIUM [Concomitant]
     Active Substance: POTASSIUM

REACTIONS (3)
  - Anaemia [Recovered/Resolved]
  - Hypokalaemia [Recovered/Resolved]
  - Pericardial effusion [Unknown]

NARRATIVE: CASE EVENT DATE: 20190128
